FAERS Safety Report 8232377-3 (Version None)
Quarter: 2012Q1

REPORT INFORMATION
  Report Type: 
  Country: None (occurrence: None)
  Receive Date: 20120323
  Receipt Date: 20120321
  Transmission Date: 20120608
  Serious: Yes (Hospitalization)
  Sender: FDA-Public Use
  Company Number: JP-GLAXOSMITHKLINE-B0785364A

PATIENT
  Sex: Male

DRUGS (5)
  1. BISOLVON [Concomitant]
     Indication: NASOPHARYNGITIS
     Route: 065
     Dates: start: 20120222
  2. RELENZA [Suspect]
     Indication: INFLUENZA
     Dosage: 2IUAX PER DAY
     Route: 055
     Dates: start: 20120223, end: 20120223
  3. PERIACTIN [Concomitant]
     Indication: NASOPHARYNGITIS
     Route: 048
     Dates: start: 20120222
  4. MUCODYNE [Concomitant]
     Indication: NASOPHARYNGITIS
     Route: 048
     Dates: start: 20120222
  5. ACETAMINOPHEN [Concomitant]
     Indication: NASOPHARYNGITIS
     Dosage: 1IUAX PER DAY
     Route: 048
     Dates: start: 20120222

REACTIONS (5)
  - WRIST FRACTURE [None]
  - AMNESIA [None]
  - ACCIDENT AT HOME [None]
  - ABNORMAL BEHAVIOUR [None]
  - UPPER LIMB FRACTURE [None]
